FAERS Safety Report 6127182-8 (Version None)
Quarter: 2009Q1

REPORT INFORMATION
  Report Type: 
  Country: None (occurrence: None)
  Receive Date: 20090320
  Receipt Date: 20090311
  Transmission Date: 20090719
  Serious: Yes (Death)
  Sender: FDA-Public Use
  Company Number: US-JNJCH-2009006339

PATIENT
  Age: 19 Year
  Sex: Male

DRUGS (1)
  1. DEXTROMETHORPHAN HYDROBROMIDE [Suspect]
     Indication: OFF LABEL USE
     Dosage: TEXT:UNSPECIFIED
     Route: 065

REACTIONS (1)
  - INTENTIONAL DRUG MISUSE [None]
